FAERS Safety Report 8406724-3 (Version None)
Quarter: 2012Q2

REPORT INFORMATION
  Report Type: 
  Country: None (occurrence: None)
  Receive Date: 20120604
  Receipt Date: 20120530
  Transmission Date: 20120825
  Serious: Yes (Hospitalization)
  Sender: FDA-Public Use
  Company Number: PHHY2012ES044865

PATIENT
  Age: 43 Year
  Sex: Male

DRUGS (2)
  1. TASIGNA [Suspect]
     Indication: CHRONIC MYELOID LEUKAEMIA
     Dosage: 400 MG, Q12H
     Route: 048
     Dates: start: 20070101, end: 20120523
  2. TASIGNA [Suspect]
     Dosage: 400 MG, Q12H
     Route: 048
     Dates: start: 20120528

REACTIONS (2)
  - HYPERBILIRUBINAEMIA [None]
  - CHOLECYSTITIS [None]
